FAERS Safety Report 19678770 (Version 1)
Quarter: 2021Q3

REPORT INFORMATION
  Report Type: Spontaneous
  Country: US (occurrence: US)
  Receive Date: 20210809
  Receipt Date: 20210809
  Transmission Date: 20211014
  Serious: No
  Sender: FDA-Public Use
  Company Number: None

PATIENT
  Age: 78 Year
  Sex: Female

DRUGS (1)
  1. ISOVUE 370 [Suspect]
     Active Substance: IOPAMIDOL
     Indication: SCAN WITH CONTRAST
     Dosage: ?          OTHER FREQUENCY:ONCE;?
     Route: 042
     Dates: start: 20210701, end: 20210701

REACTIONS (6)
  - Cough [None]
  - Scratch [None]
  - Erythema [None]
  - Feeling abnormal [None]
  - Sneezing [None]
  - Flushing [None]

NARRATIVE: CASE EVENT DATE: 20210701
